FAERS Safety Report 6287643-8 (Version None)
Quarter: 2009Q4

REPORT INFORMATION
  Report Type: 
  Country: None (occurrence: None)
  Receive Date: 20090727
  Receipt Date: 20090727
  Transmission Date: 20100525
  Serious: No
  Sender: FDA-Public Use
  Company Number: None

PATIENT
  Age: 63 Year
  Sex: Female

DRUGS (18)
  1. DIFLUCAN [Suspect]
     Dosage: 100 MG QD, PO
     Route: 048
     Dates: start: 20071214, end: 20080101
  2. DIOVAN [Concomitant]
  3. SYNTHROID [Concomitant]
  4. ALLOPURINOL [Concomitant]
  5. PREVACID [Concomitant]
  6. XANAX [Concomitant]
  7. AMBIEN CR [Concomitant]
  8. NORTRIPTYLINE HCL [Concomitant]
  9. EFFEXOR [Concomitant]
  10. DONNATAL [Concomitant]
  11. FEMARA [Concomitant]
  12. ATENOLOL [Concomitant]
  13. VITAMIN D [Concomitant]
  14. IRON [Concomitant]
  15. WOMEN'S ULTRA DAILY MVI [Concomitant]
  16. LEVSIN [Concomitant]
  17. VICODIN [Concomitant]
  18. CLINDAMYCIN [Concomitant]

REACTIONS (4)
  - BREAST CANCER METASTATIC [None]
  - BREAST CANCER RECURRENT [None]
  - LIVER INJURY [None]
  - METASTASES TO LYMPH NODES [None]
